FAERS Safety Report 4783496-5 (Version None)
Quarter: 2005Q3

REPORT INFORMATION
  Report Type: 
  Country: None (occurrence: None)
  Receive Date: 20050929
  Receipt Date: 20050921
  Transmission Date: 20060218
  Serious: Yes (Other)
  Sender: FDA-Public Use
  Company Number: PHBS2005BR14214

PATIENT
  Age: 28 Year
  Sex: Female
  Weight: 96 kg

DRUGS (2)
  1. LITHIUM [Concomitant]
     Dosage: 300 MG, QID
     Dates: start: 20040801
  2. TRILEPTAL [Suspect]
     Indication: BIPOLAR DISORDER
     Route: 048
     Dates: start: 20040101, end: 20041201

REACTIONS (3)
  - HYPOTHYROIDISM [None]
  - SOMNOLENCE [None]
  - WEIGHT INCREASED [None]
